FAERS Safety Report 14448267 (Version 4)
Quarter: 2018Q4

REPORT INFORMATION
  Report Type: Spontaneous
  Country: US (occurrence: US)
  Receive Date: 20180126
  Receipt Date: 20181008
  Transmission Date: 20190204
  Serious: Yes (Hospitalization, Other)
  Sender: FDA-Public Use
  Company Number: US-PFIZER INC-2018029804

PATIENT
  Age: 30 Year
  Sex: Male

DRUGS (3)
  1. LIDOCAINE HCL [Suspect]
     Active Substance: LIDOCAINE HYDROCHLORIDE
     Indication: ANAESTHESIA
     Dosage: 1 ML, UNK
     Route: 008
  2. OMNIPAQUE [Concomitant]
     Active Substance: IOHEXOL
     Dosage: 2 ML, UNK
  3. DEXAMETHASONE. [Suspect]
     Active Substance: DEXAMETHASONE
     Indication: ANAESTHESIA
     Dosage: 1 ML, UNK (1 ML OF DEXAMETHASONE (10 MG/ML)
     Route: 008

REACTIONS (1)
  - Quadriplegia [Recovering/Resolving]
